FAERS Safety Report 5379351-2 (Version None)
Quarter: 2007Q3

REPORT INFORMATION
  Report Type: 
  Country: None (occurrence: None)
  Receive Date: 20070705
  Receipt Date: 20070622
  Transmission Date: 20080115
  Serious: Yes (Other)
  Sender: FDA-Public Use
  Company Number: US-GENENTECH-238320

PATIENT
  Sex: Female
  Weight: 58.2 kg

DRUGS (12)
  1. BEVACIZUMAB [Suspect]
     Indication: COLORECTAL CANCER METASTATIC
     Dosage: 5 MG/KG, Q2W
     Route: 042
     Dates: start: 20061226
  2. OXALIPLATIN [Suspect]
     Indication: COLORECTAL CANCER METASTATIC
     Dosage: 85 MG/M2, Q2W
     Route: 042
     Dates: start: 20061226
  3. FLUOROURACIL [Suspect]
     Indication: COLORECTAL CANCER METASTATIC
     Dosage: 2400 MG/M2, UNK
     Route: 042
     Dates: start: 20061226
  4. LEUCOVORIN CALCIUM [Suspect]
     Indication: COLORECTAL CANCER METASTATIC
     Dosage: 200 MG/M2, Q2W
     Route: 042
     Dates: start: 20061226
  5. CALCIUM/MAGNESIUM OR PLACEBO [Suspect]
     Indication: COLORECTAL CANCER METASTATIC
     Dosage: 1 UNIT, Q2W
     Route: 042
     Dates: start: 20061226
  6. DECADRON [Suspect]
     Indication: PREMEDICATION
     Dosage: UNK, UNK
  7. BENADRYL [Suspect]
     Indication: PREMEDICATION
  8. ONDANSETRON [Concomitant]
     Indication: PREMEDICATION
     Dates: start: 20070306
  9. ACETAMINOPHEN [Concomitant]
     Indication: PREMEDICATION
     Dates: start: 20070306
  10. METOPROLOL SUCCINATE [Concomitant]
     Indication: HYPERTENSION
     Dates: start: 20061026
  11. TELMISARTAN [Concomitant]
     Indication: HYPERTENSION
     Dates: start: 20070301
  12. POTASSIUM CHLORIDE [Concomitant]
     Indication: HYPOKALAEMIA
     Dates: start: 20070220

REACTIONS (1)
  - CONFUSIONAL STATE [None]
